FAERS Safety Report 23239787 (Version 3)
Quarter: 2025Q3

REPORT INFORMATION
  Report Type: Spontaneous
  Country: JP (occurrence: JP)
  Receive Date: 20231129
  Receipt Date: 20250902
  Transmission Date: 20251020
  Serious: Yes (Other)
  Sender: NOVARTIS
  Company Number: JP-002147023-NVSJ2023JP016742

PATIENT
  Age: 0 Year
  Sex: Male
  Weight: 9.6 kg

DRUGS (8)
  1. NEORAL [Suspect]
     Active Substance: CYCLOSPORINE
     Indication: Kawasaki^s disease
     Dosage: 20 MG, BID
     Route: 048
     Dates: start: 20181114
  2. NEORAL [Suspect]
     Active Substance: CYCLOSPORINE
     Dosage: 30 MG, BID
     Route: 048
     Dates: start: 20181116
  3. NEORAL [Suspect]
     Active Substance: CYCLOSPORINE
     Dosage: 15 MG, BID
     Route: 048
     Dates: start: 20181122
  4. NEORAL [Suspect]
     Active Substance: CYCLOSPORINE
     Dosage: 30 MG, BID
     Route: 048
     Dates: start: 20181130, end: 20190121
  5. METHOTREXATE [Suspect]
     Active Substance: METHOTREXATE
     Indication: Blau syndrome
     Route: 065
  6. ASPIRIN [Suspect]
     Active Substance: ASPIRIN
     Indication: Product used for unknown indication
     Dosage: 45 MG, QD, MORNING
     Route: 065
  7. Immunoglobulin [Concomitant]
     Indication: Kawasaki^s disease
     Route: 042
  8. PREDNISOLONE [Concomitant]
     Active Substance: PREDNISOLONE
     Indication: Blau syndrome
     Route: 065

REACTIONS (1)
  - Pancreatitis acute [Recovered/Resolved]

NARRATIVE: CASE EVENT DATE: 20190121
